FAERS Safety Report 9668054 (Version 2)
Quarter: 2014Q3

REPORT INFORMATION
  Report Type: Spontaneous
  Country: US (occurrence: US)
  Receive Date: 20131104
  Receipt Date: 20140812
  Transmission Date: 20150326
  Serious: Yes (Hospitalization, Other)
  Sender: FDA-Public Use
  Company Number: US-009507513-1310USA014111

PATIENT
  Sex: Female
  Weight: 61.22 kg

DRUGS (1)
  1. NUVARING [Suspect]
     Active Substance: ETHINYL ESTRADIOL\ETONOGESTREL
     Indication: PROPHYLAXIS
     Dosage: UNK
     Route: 067
     Dates: start: 2006, end: 201004

REACTIONS (12)
  - Pulmonary embolism [Unknown]
  - Pyelonephritis [Unknown]
  - Polycystic ovaries [Unknown]
  - Asthma exercise induced [Unknown]
  - Renal cyst [Unknown]
  - Oligomenorrhoea [Unknown]
  - Hypercoagulation [Unknown]
  - Pyelonephritis [Unknown]
  - Off label use [Unknown]
  - Pelvic venous thrombosis [Unknown]
  - Ovarian cyst ruptured [Unknown]
  - Ovarian cyst [Unknown]

NARRATIVE: CASE EVENT DATE: 20100411
